FAERS Safety Report 13237443 (Version 2)
Quarter: 2017Q1

REPORT INFORMATION
  Report Type: Report from Study
  Country: JP (occurrence: JP)
  Receive Date: 20170215
  Receipt Date: 20170308
  Transmission Date: 20170428
  Serious: Yes (Death, Hospitalization, Other)
  Sender: FDA-Public Use
  Company Number: JP-GILEAD-E2B_00001149

PATIENT
  Age: 53 Year
  Sex: Female
  Weight: 50 kg

DRUGS (16)
  1. AMBRISENTAN [Suspect]
     Active Substance: AMBRISENTAN
     Indication: CONNECTIVE TISSUE DISORDER
     Dosage: 5 MG, QD
     Route: 048
     Dates: start: 20101216, end: 20110218
  2. ADCIRCA [Suspect]
     Active Substance: TADALAFIL
     Indication: PRODUCT USED FOR UNKNOWN INDICATION
     Dosage: UNK
     Route: 065
  3. HUMALOG [Concomitant]
     Active Substance: INSULIN LISPRO
     Dosage: UNK
  4. AMBRISENTAN [Suspect]
     Active Substance: AMBRISENTAN
     Dosage: 1 DF, QD
     Route: 048
     Dates: end: 20121211
  5. AMBRISENTAN [Suspect]
     Active Substance: AMBRISENTAN
     Dosage: 1.5 DF, QD
     Route: 048
     Dates: start: 20120725
  6. AMBRISENTAN [Suspect]
     Active Substance: AMBRISENTAN
     Dosage: 2.5 MG, QD
     Route: 048
     Dates: start: 201203
  7. SOLANAX [Concomitant]
     Active Substance: ALPRAZOLAM
     Dosage: UNK
  8. FUROSEMIDE. [Concomitant]
     Active Substance: FUROSEMIDE
     Dosage: UNK
  9. AMBRISENTAN [Suspect]
     Active Substance: AMBRISENTAN
     Dosage: 1 DF, QD
     Route: 048
  10. BAYASPIRIN [Concomitant]
     Active Substance: ASPIRIN
     Dosage: UNK
  11. AMBRISENTAN [Suspect]
     Active Substance: AMBRISENTAN
     Indication: PULMONARY ARTERIAL HYPERTENSION
     Dosage: 2.5 MG, QD
     Route: 048
     Dates: start: 20101207, end: 20101215
  12. AMBRISENTAN [Suspect]
     Active Substance: AMBRISENTAN
     Dosage: 2.5 MG, QD
     Route: 048
     Dates: start: 20110219
  13. PREDONINE [Concomitant]
     Active Substance: PREDNISOLONE
     Dosage: UNK
  14. ALDACTONE A [Concomitant]
     Active Substance: SPIRONOLACTONE
     Dosage: UNK
  15. TAKEPRON [Concomitant]
     Active Substance: LANSOPRAZOLE
     Dosage: UNK
  16. DIOVAN [Concomitant]
     Active Substance: VALSARTAN
     Dosage: UNK

REACTIONS (11)
  - Condition aggravated [Fatal]
  - Musculoskeletal discomfort [Unknown]
  - Dyspnoea exertional [Unknown]
  - Cardiac failure [Unknown]
  - Dizziness [Recovered/Resolved]
  - Intentional product use issue [Not Recovered/Not Resolved]
  - Fatigue [Unknown]
  - Eye pain [Unknown]
  - Pulmonary arterial hypertension [Fatal]
  - Off label use [Unknown]
  - Headache [Recovering/Resolving]

NARRATIVE: CASE EVENT DATE: 20101207
